FAERS Safety Report 22132436 (Version 1)
Quarter: 2023Q1

REPORT INFORMATION
  Report Type: Spontaneous
  Country: US (occurrence: US)
  Receive Date: 20230323
  Receipt Date: 20230323
  Transmission Date: 20230418
  Serious: No
  Sender: FDA-Public Use
  Company Number: US-SUNOVION-2023SUN000426AA

PATIENT
  Age: 48 Year
  Sex: Female

DRUGS (2)
  1. LURASIDONE HYDROCHLORIDE [Suspect]
     Active Substance: LURASIDONE HYDROCHLORIDE
     Dosage: 80 MG, BID
     Route: 048
     Dates: start: 202303
  2. LATUDA [Suspect]
     Active Substance: LURASIDONE HYDROCHLORIDE
     Dosage: 80 MG, BID
     Route: 048

REACTIONS (2)
  - Feeling abnormal [Unknown]
  - Inappropriate schedule of product administration [Unknown]
